FAERS Safety Report 5080112-2 (Version None)
Quarter: 2006Q3

REPORT INFORMATION
  Report Type: 
  Country: None (occurrence: None)
  Receive Date: 20060810
  Receipt Date: 20060728
  Transmission Date: 20061208
  Serious: Yes (Death, Other)
  Sender: FDA-Public Use
  Company Number: 2005078325

PATIENT
  Age: 79 Year
  Sex: Male
  Weight: 97.977 kg

DRUGS (8)
  1. NEURONTIN [Suspect]
     Indication: PAIN
     Dosage: 600 MG, AS NECESSARY), ORAL
     Route: 048
     Dates: start: 20030315
  2. HYDROCHLOROTHIAZIDE [Concomitant]
  3. FLEXERIL [Concomitant]
  4. HYDROCODONE BITARTRATE + ACETAMINOPHEN [Concomitant]
  5. BEXTRA [Concomitant]
  6. ADVIL [Concomitant]
  7. LORTAB [Concomitant]
  8. CYCLOBENZAPRINE HCL [Concomitant]

REACTIONS (7)
  - COMPLETED SUICIDE [None]
  - DEPRESSION [None]
  - DRUG INEFFECTIVE [None]
  - GUN SHOT WOUND [None]
  - HEAD INJURY [None]
  - LUMBAR RADICULOPATHY [None]
  - PAIN IN EXTREMITY [None]
